FAERS Safety Report 6305966-0 (Version None)
Quarter: 2009Q3

REPORT INFORMATION
  Report Type: 
  Country: None (occurrence: None)
  Receive Date: 20090812
  Receipt Date: 20070716
  Transmission Date: 20100115
  Serious: Yes (Hospitalization, Other)
  Sender: FDA-Public Use
  Company Number: US-ASTRAZENECA-2006UW23078

PATIENT
  Age: 42 Year
  Sex: Male
  Weight: 90.7 kg

DRUGS (17)
  1. SEROQUEL [Suspect]
     Indication: BIPOLAR DISORDER
     Route: 048
     Dates: start: 20000101
  2. SEROQUEL [Suspect]
     Indication: SCHIZOPHRENIA
     Route: 048
     Dates: start: 20000101
  3. SEROQUEL [Suspect]
     Indication: DEPRESSION
     Route: 048
     Dates: start: 20000101
  4. SEROQUEL [Suspect]
     Indication: AFFECTIVE DISORDER
     Route: 048
     Dates: start: 20000101
  5. SEROQUEL [Suspect]
     Dosage: 25 MG - 400 MG
     Route: 048
     Dates: start: 20020227
  6. SEROQUEL [Suspect]
     Dosage: 25 MG - 400 MG
     Route: 048
     Dates: start: 20020227
  7. SEROQUEL [Suspect]
     Dosage: 25 MG - 400 MG
     Route: 048
     Dates: start: 20020227
  8. SEROQUEL [Suspect]
     Dosage: 25 MG - 400 MG
     Route: 048
     Dates: start: 20020227
  9. THORAZINE [Concomitant]
  10. LANTUS [Concomitant]
     Dosage: 30 UNITS, AT NIGHT
     Route: 058
  11. HUMALOG [Concomitant]
     Dosage: SLIDING SCALE
     Route: 058
  12. DEPAKOTE [Concomitant]
     Dosage: 500 MG, TWO TABLETS AT NIGHT
     Route: 048
  13. EFFEXOR [Concomitant]
     Route: 048
  14. RESTORIL [Concomitant]
     Route: 048
     Dates: start: 20060612
  15. REMERON [Concomitant]
     Route: 048
  16. LISINOPRIL [Concomitant]
     Route: 048
  17. GLUCOPHAGE [Concomitant]
     Route: 048
     Dates: start: 20060911

REACTIONS (17)
  - ALCOHOLIC PANCREATITIS [None]
  - DIABETES MELLITUS [None]
  - DIABETES MELLITUS INADEQUATE CONTROL [None]
  - DIABETIC FOOT [None]
  - DIABETIC KETOACIDOSIS [None]
  - GLUCOSE TOLERANCE IMPAIRED [None]
  - HYPERGLYCAEMIA [None]
  - HYPOGLYCAEMIA [None]
  - INSULIN-REQUIRING TYPE 2 DIABETES MELLITUS [None]
  - INTENTIONAL OVERDOSE [None]
  - METABOLIC ACIDOSIS [None]
  - MULTIPLE DRUG OVERDOSE [None]
  - PANCREATITIS [None]
  - PANCREATITIS ACUTE [None]
  - PANCREATOGENOUS DIABETES [None]
  - SUICIDE ATTEMPT [None]
  - TYPE 2 DIABETES MELLITUS [None]
